FAERS Safety Report 4607316-4 (Version None)
Quarter: 2005Q1

REPORT INFORMATION
  Report Type: 
  Country: None (occurrence: None)
  Receive Date: 20050314
  Receipt Date: 20041215
  Transmission Date: 20050727
  Serious: Yes (Hospitalization, Disabling)
  Sender: FDA-Public Use
  Company Number: AU-MERCK-0412AUS00144

PATIENT
  Age: 46 Year
  Sex: Male

DRUGS (7)
  1. VIOXX [Suspect]
     Route: 048
     Dates: start: 20030901, end: 20041001
  2. OMEPRAZOLE [Concomitant]
     Route: 065
  3. NAPROXEN [Concomitant]
     Route: 065
  4. ZOLPIDEM TARTRATE [Concomitant]
     Route: 065
  5. TRAMADOL HYDROCHLORIDE [Concomitant]
     Route: 065
  6. MOCLOBEMIDE [Concomitant]
     Route: 065
  7. INSULIN LISPRO [Concomitant]
     Route: 065

REACTIONS (2)
  - CARDIAC DISORDER [None]
  - MYOCARDIAL INFARCTION [None]
